FAERS Safety Report 7070973-X (Version None)
Quarter: 2010Q4

REPORT INFORMATION
  Report Type: 
  Country: None (occurrence: None)
  Receive Date: 20101029
  Receipt Date: 20101018
  Transmission Date: 20110411
  Serious: Yes (Hospitalization)
  Sender: FDA-Public Use
  Company Number: CA-JNJFOC-20100904863

PATIENT
  Sex: Female
  Weight: 54.5 kg

DRUGS (14)
  1. REMICADE [Suspect]
     Indication: BEHCET'S SYNDROME
     Dosage: 5 TOTAL DOSES
     Route: 042
  2. REMICADE [Suspect]
     Route: 042
  3. REMICADE [Suspect]
     Route: 042
  4. REMICADE [Suspect]
     Route: 042
  5. REMICADE [Suspect]
     Indication: CROHN'S DISEASE
     Route: 042
  6. REMICADE [Suspect]
     Route: 042
  7. REMICADE [Suspect]
     Dosage: 5 TOTAL DOSES
     Route: 042
  8. REMICADE [Suspect]
     Route: 042
  9. STATEX [Concomitant]
  10. XANAX [Concomitant]
  11. ALPRAZOLAM [Concomitant]
  12. MORPHINE [Concomitant]
  13. IMOVANE [Concomitant]
  14. ATIVAN [Concomitant]

REACTIONS (8)
  - ASTHENIA [None]
  - BACTERIAL SEPSIS [None]
  - BEHCET'S SYNDROME [None]
  - DENTAL OPERATION [None]
  - GASTROENTERITIS VIRAL [None]
  - HAEMOGLOBIN DECREASED [None]
  - HEART RATE IRREGULAR [None]
  - ORAL DISORDER [None]
